FAERS Safety Report 6100487-2 (Version None)
Quarter: 2009Q1

REPORT INFORMATION
  Report Type: 
  Country: None (occurrence: None)
  Receive Date: 20090227
  Receipt Date: 20090227
  Transmission Date: 20090719
  Serious: Yes (Hospitalization)
  Sender: FDA-Public Use
  Company Number: None

PATIENT
  Sex: Male
  Weight: 98.4 kg

DRUGS (4)
  1. TAXOTERE [Suspect]
     Dosage: 163.5 MG
  2. LEUPROLIDE ACETATE [Suspect]
     Dosage: 22.5 MG
  3. PREDNISONE [Suspect]
     Dosage: 10 MG
  4. CASODEX [Suspect]
     Dosage: 5600 MG

REACTIONS (1)
  - FEBRILE NEUTROPENIA [None]
